FAERS Safety Report 10159139 (Version 1)
Quarter: 2014Q2

REPORT INFORMATION
  Report Type: Spontaneous
  Country: US (occurrence: None)
  Receive Date: 20140507
  Receipt Date: 20140507
  Transmission Date: 20141212
  Serious: Yes (Hospitalization)
  Sender: FDA-Public Use
  Company Number: None

PATIENT
  Age: 69 Year
  Sex: Male

DRUGS (7)
  1. ZYTIGA 250 MG JANSSEN BIOTECH [Suspect]
     Indication: PRODUCT USED FOR UNKNOWN INDICATION
     Dosage: 250 MG 1000MG DAILY ORAL
     Route: 048
     Dates: start: 20140409
  2. MEGESTROL [Concomitant]
  3. AMITRIPTYLINE [Concomitant]
  4. LUPRON [Concomitant]
  5. MULTIVITAMINS [Concomitant]
  6. VITAMIN C [Concomitant]
  7. GLUCOSAMINE/CHONDROITIN [Concomitant]

REACTIONS (2)
  - Nephrolithiasis [None]
  - Drug dose omission [None]
